FAERS Safety Report 7752583-1 (Version None)
Quarter: 2011Q3

REPORT INFORMATION
  Report Type: 
  Country: None (occurrence: None)
  Receive Date: 20110915
  Receipt Date: 20110906
  Transmission Date: 20111222
  Serious: Yes (Other)
  Sender: FDA-Public Use
  Company Number: DE-UCBSA-040392

PATIENT
  Sex: Male
  Weight: 83 kg

DRUGS (6)
  1. KEPPRA [Suspect]
     Dosage: DOSE: 500 MG - 0 - 1000 MG
  2. UNSPECIFIED BETA-SYMPATHOMIMETIC AGENT [Concomitant]
     Indication: ASTHMA
  3. MICARDIS [Concomitant]
     Indication: HYPERTENSION
     Route: 048
     Dates: start: 20100101
  4. FORMATRIS [Concomitant]
     Indication: ASTHMA
     Route: 055
  5. KEPPRA [Suspect]
     Indication: PARTIAL SEIZURES
     Dosage: DOSE: 1000 MG - 0 - 1000 MG
     Dates: start: 20100301
  6. AMLODIPINE [Concomitant]
     Route: 048

REACTIONS (7)
  - ASTHMA [None]
  - SOMNOLENCE [None]
  - BALANCE DISORDER [None]
  - APHASIA [None]
  - MEMORY IMPAIRMENT [None]
  - NASOPHARYNGITIS [None]
  - DISORIENTATION [None]
